FAERS Safety Report 25978884 (Version 1)
Quarter: 2025Q4

REPORT INFORMATION
  Report Type: Spontaneous
  Country: EU (occurrence: EU)
  Receive Date: 20251030
  Receipt Date: 20251030
  Transmission Date: 20260117
  Serious: Yes (Other)
  Sender: TEVA
  Company Number: EU-TEVA-VS-3382708

PATIENT
  Age: 64 Year
  Sex: Male

DRUGS (1)
  1. DULOXETINE HYDROCHLORIDE [Suspect]
     Active Substance: DULOXETINE HYDROCHLORIDE
     Indication: Product used for unknown indication
     Dosage: 100 PIECES
     Route: 048

REACTIONS (5)
  - Foreign body in throat [Unknown]
  - Product odour abnormal [Unknown]
  - Product use complaint [Unknown]
  - Product taste abnormal [Unknown]
  - Dyspepsia [Recovered/Resolved]
